FAERS Safety Report 7225624-8 (Version None)
Quarter: 2011Q1

REPORT INFORMATION
  Report Type: 
  Country: None (occurrence: None)
  Receive Date: 20110107
  Receipt Date: 20110107
  Transmission Date: 20110831
  Serious: Yes (Hospitalization, Disabling)
  Sender: FDA-Public Use
  Company Number: None

PATIENT
  Sex: Female
  Weight: 68.0396 kg

DRUGS (1)
  1. LEVAQUIN [Suspect]
     Indication: SINUS OPERATION
     Dosage: 500 MG 1 DAILY
     Dates: start: 20061010

REACTIONS (2)
  - NEPHROLITHIASIS [None]
  - TENDON RUPTURE [None]
